FAERS Safety Report 26135113 (Version 1)
Quarter: 2025Q4

REPORT INFORMATION
  Report Type: Spontaneous
  Country: CA (occurrence: None)
  Receive Date: 20251208
  Receipt Date: 20251208
  Transmission Date: 20260117
  Serious: Yes (Hospitalization)
  Sender: FDA-CTU
  Company Number: None

PATIENT
  Age: 36 Year
  Sex: Female
  Weight: 85 kg

DRUGS (1)
  1. INVEGA SUSTENNA [Suspect]
     Active Substance: PALIPERIDONE PALMITATE
     Indication: Schizophrenia
     Dosage: OTHER QUANTITY : 1 INJECTION(S);?OTHER FREQUENCY : ONCE A MONTH;?

REACTIONS (11)
  - Sensory disturbance [None]
  - Swelling [None]
  - Hallucination [None]
  - Cognitive disorder [None]
  - Speech disorder [None]
  - Menstruation irregular [None]
  - Cyanosis [None]
  - Insomnia [None]
  - Screaming [None]
  - Speech disorder [None]
  - Sexually inappropriate behaviour [None]

NARRATIVE: CASE EVENT DATE: 20251002
